FAERS Safety Report 6920193-1 (Version None)
Quarter: 2010Q3

REPORT INFORMATION
  Report Type: 
  Country: None (occurrence: None)
  Receive Date: 20100809
  Receipt Date: 20100804
  Transmission Date: 20110219
  Serious: Yes (Death)
  Sender: FDA-Public Use
  Company Number: 2010SP042340

PATIENT
  Age: 57 Year
  Sex: Male

DRUGS (3)
  1. RIBAVIRIN [Suspect]
     Indication: HEPATITIS C VIRUS TEST POSITIVE
     Dosage: PO
     Route: 048
  2. PEG INTERFERON (INTERFERONS) [Suspect]
     Indication: HEPATITIS C VIRUS TEST POSITIVE
     Dosage: SC
     Route: 058
  3. PROGRAF [Concomitant]

REACTIONS (1)
  - LIVER TRANSPLANT REJECTION [None]
